FAERS Safety Report 16534170 (Version 1)
Quarter: 2019Q3

REPORT INFORMATION
  Report Type: Spontaneous
  Country: US (occurrence: US)
  Receive Date: 20190703
  Receipt Date: 20190703
  Transmission Date: 20191004
  Serious: Yes (Death)
  Sender: FDA-Public Use
  Company Number: None

PATIENT
  Age: 63 Year
  Sex: Female

DRUGS (9)
  1. VOTRIENT [Suspect]
     Active Substance: PAZOPANIB HYDROCHLORIDE
     Indication: RENAL CANCER
     Route: 048
     Dates: start: 20160803, end: 20190702
  2. HYDROCODONE [Concomitant]
     Active Substance: HYDROCODONE
  3. LIDOCAINE. [Concomitant]
     Active Substance: LIDOCAINE
  4. AMLODIPINE [Concomitant]
     Active Substance: AMLODIPINE BESYLATE
  5. CLONIDINE. [Concomitant]
     Active Substance: CLONIDINE
  6. GABAPENTIN. [Concomitant]
     Active Substance: GABAPENTIN
  7. VENLAFAXINE [Concomitant]
     Active Substance: VENLAFAXINE HYDROCHLORIDE
  8. CALCIUM [Concomitant]
     Active Substance: CALCIUM
  9. MORPHINE [Concomitant]
     Active Substance: MORPHINE

REACTIONS (1)
  - Death [None]

NARRATIVE: CASE EVENT DATE: 20190702
